FAERS Safety Report 10699488 (Version 1)
Quarter: 2015Q1

REPORT INFORMATION
  Report Type: Spontaneous
  Country: CN (occurrence: CN)
  Receive Date: 20150109
  Receipt Date: 20150109
  Transmission Date: 20150721
  Serious: Yes (Other)
  Sender: FDA-Public Use
  Company Number: CN-CIPLA LTD.-2015CN00328

PATIENT

DRUGS (5)
  1. GEMCITABINE [Suspect]
     Active Substance: GEMCITABINE\GEMCITABINE HYDROCHLORIDE
     Indication: COLON CANCER
  2. 5 FLUROURACIL [Suspect]
     Active Substance: FLUOROURACIL
     Indication: COLON CANCER
  3. IRINOTECAN [Suspect]
     Active Substance: IRINOTECAN
     Indication: COLON CANCER
  4. OXALIPLATIN. [Suspect]
     Active Substance: OXALIPLATIN
     Indication: COLON CANCER
  5. CAPECITABINE. [Suspect]
     Active Substance: CAPECITABINE
     Indication: COLON CANCER

REACTIONS (7)
  - Metastases to lung [Unknown]
  - Nausea [Unknown]
  - Malignant neoplasm progression [None]
  - Decreased appetite [Unknown]
  - Metastases to liver [None]
  - Metastases to ovary [Unknown]
  - Adenocarcinoma [Unknown]
